FAERS Safety Report 19143618 (Version 1)
Quarter: 2021Q2

REPORT INFORMATION
  Report Type: Spontaneous
  Country: CA (occurrence: CA)
  Receive Date: 20210415
  Receipt Date: 20210415
  Transmission Date: 20210717
  Serious: Yes (Hospitalization)
  Sender: FDA-Public Use
  Company Number: CA-ABBVIE-21K-028-3853765-00

PATIENT
  Age: 26 Year
  Sex: Female

DRUGS (3)
  1. HUMIRA [Suspect]
     Active Substance: ADALIMUMAB
     Indication: ANKYLOSING SPONDYLITIS
     Route: 058
  2. BOTOX [Suspect]
     Active Substance: ONABOTULINUMTOXINA
     Indication: PRODUCT USED FOR UNKNOWN INDICATION
     Route: 065
  3. ALLERGAN [Suspect]
     Active Substance: PAPAIN
     Indication: PRODUCT USED FOR UNKNOWN INDICATION
     Dosage: 50 ALLERGAN U VIAL,100U/100 ALLERGAN U VIAL, 200U/200ALL
     Route: 065

REACTIONS (3)
  - Administration site wound [Not Recovered/Not Resolved]
  - Injection site infection [Not Recovered/Not Resolved]
  - Off label use [Not Recovered/Not Resolved]
